FAERS Safety Report 23256277 (Version 1)
Quarter: 2023Q4

REPORT INFORMATION
  Report Type: Other
  Country: DE (occurrence: None)
  Receive Date: 20231204
  Receipt Date: 20231204
  Transmission Date: 20240110
  Serious: Yes (Hospitalization)
  Sender: FDA-Public Use
  Company Number: DE-ROCHE-3466975

PATIENT
  Sex: Male

DRUGS (7)
  1. OCREVUS [Suspect]
     Active Substance: OCRELIZUMAB
     Indication: Product used for unknown indication
     Route: 042
     Dates: start: 20200810, end: 20200824
  2. OCREVUS [Suspect]
     Active Substance: OCRELIZUMAB
     Dosage: MOST RECENT DOSE PRIOR TO AE 30/AUG/2021
     Route: 042
     Dates: start: 20210302
  3. HUMAN ROTAVIRUS A [Concomitant]
     Active Substance: HUMAN ROTAVIRUS A
     Dosage: BOOSTER ON 20/SEP/2022
     Dates: start: 20220823
  4. HEPATITIS B VIRUS VACCINE [Concomitant]
     Active Substance: HEPATITIS B VIRUS VACCINE
     Dosage: BOOSTER DOSE ADMINISTERED ON 30/NOV/2022
     Dates: start: 20220920
  5. DTAP-IPV-HIB [Concomitant]
     Dosage: BOOSTER DOSE ADMINISTERED ON 30/NOV/2022
     Dates: start: 20220920
  6. PNEUMOCOCCAL VACCINE POLYVALENT NOS [Concomitant]
     Active Substance: PNEUMOCOCCAL VACCINE POLYVALENT
     Dosage: BOOSTER DOSE ADMINISTERED ON 30/NOV/2022
     Dates: start: 20220920
  7. MEASLES-MUMPS-RUBELLA VIRUS VACCINE [Concomitant]
     Active Substance: MEASLES-MUMPS-RUBELLA VIRUS VACCINE

REACTIONS (1)
  - Neonatal infection [Recovered/Resolved]
